FAERS Safety Report 16764528 (Version 1)
Quarter: 2019Q3

REPORT INFORMATION
  Report Type: Spontaneous
  Country: FI (occurrence: FI)
  Receive Date: 20190902
  Receipt Date: 20190902
  Transmission Date: 20191005
  Serious: Yes (Life-Threatening)
  Sender: FDA-Public Use
  Company Number: FI-PFIZER INC-2019377278

PATIENT
  Age: 86 Year
  Sex: Female

DRUGS (10)
  1. PROPRAL [Concomitant]
     Dosage: UNK
     Route: 065
  2. TREXAN [Suspect]
     Active Substance: METHOTREXATE SODIUM
     Indication: ARTHRITIS
     Dosage: 10 MG, WEEKLY
     Route: 048
     Dates: start: 20190603, end: 20190717
  3. ATORVASTATIN [ATORVASTATIN CALCIUM TRIHYDRATE] [Concomitant]
     Dosage: 10 MG, DAILY
     Route: 065
  4. COHEMIN [Concomitant]
     Dosage: 1 MG, CYCLIC
     Route: 065
  5. PREDNISOLON [PREDNISOLONE] [Concomitant]
     Active Substance: PREDNISOLONE
     Dosage: 20 MG, DAILY
     Route: 065
  6. PRIMASPAN [Concomitant]
     Active Substance: ASPIRIN
     Dosage: 100 MG, DAILY
     Route: 065
  7. EMCONCOR CHF [Concomitant]
     Active Substance: BISOPROLOL FUMARATE
     Dosage: 2.5 MG, DAILY
     Route: 065
  8. FOLIC ACID. [Concomitant]
     Active Substance: FOLIC ACID
     Dosage: 5 MG, WEEKLY
     Route: 065
  9. LOSARTAN [LOSARTAN POTASSIUM] [Concomitant]
     Dosage: 50 MG, DAILY
     Route: 065
  10. PANADOL FORTE [PARACETAMOL] [Concomitant]
     Dosage: UNK
     Route: 065

REACTIONS (1)
  - Lung infiltration [Recovered/Resolved]

NARRATIVE: CASE EVENT DATE: 20190717
